FAERS Safety Report 12701731 (Version 2)
Quarter: 2017Q2

REPORT INFORMATION
  Report Type: Spontaneous
  Country: US (occurrence: US)
  Receive Date: 20160831
  Receipt Date: 20170503
  Transmission Date: 20170830
  Serious: Yes (Other)
  Sender: FDA-Public Use
  Company Number: US-JAZZ-2016-US-007409

PATIENT
  Sex: Female

DRUGS (28)
  1. XYREM [Suspect]
     Active Substance: SODIUM OXYBATE
     Dosage: 4.5 G, FIRST DOSE
     Route: 048
     Dates: start: 201601
  2. ATENOLOL. [Concomitant]
     Active Substance: ATENOLOL
  3. AMANTADINE. [Concomitant]
     Active Substance: AMANTADINE HYDROCHLORIDE
  4. PREDNISONE. [Concomitant]
     Active Substance: PREDNISONE
  5. SOMA [Concomitant]
     Active Substance: CARISOPRODOL
  6. XYREM [Suspect]
     Active Substance: SODIUM OXYBATE
     Indication: HYPERSOMNIA
     Dosage: 2.25 G, BID
     Route: 048
     Dates: start: 200902, end: 200903
  7. XYREM [Suspect]
     Active Substance: SODIUM OXYBATE
     Dosage: DOSE ADJUSTMENTS
     Route: 048
  8. ADDERALL [Concomitant]
     Active Substance: AMPHETAMINE ASPARTATE\AMPHETAMINE SULFATE\DEXTROAMPHETAMINE SACCHARATE\DEXTROAMPHETAMINE SULFATE
  9. FLONASE [Concomitant]
     Active Substance: FLUTICASONE PROPIONATE
  10. XYREM [Suspect]
     Active Substance: SODIUM OXYBATE
     Dosage: 3.25 G, SECOND DOSE
     Route: 048
     Dates: start: 201601
  11. FENTANYL. [Concomitant]
     Active Substance: FENTANYL
  12. MONTELUKAST SODIUM. [Concomitant]
     Active Substance: MONTELUKAST SODIUM
  13. ALLOPURINOL. [Concomitant]
     Active Substance: ALLOPURINOL
  14. HYDROCODONE/ACETAMINOPHEN [Concomitant]
     Active Substance: ACETAMINOPHEN\HYDROCODONE
  15. SENOKOT [Concomitant]
     Active Substance: SENNOSIDES
  16. LASIX [Concomitant]
     Active Substance: FUROSEMIDE
  17. LEVOTHYROXINE. [Concomitant]
     Active Substance: LEVOTHYROXINE
  18. LYRICA [Concomitant]
     Active Substance: PREGABALIN
  19. PLAQUENIL [Concomitant]
     Active Substance: HYDROXYCHLOROQUINE SULFATE
  20. ZETIA [Concomitant]
     Active Substance: EZETIMIBE
  21. DARVOCET [Concomitant]
     Active Substance: ACETAMINOPHEN\PROPOXYPHENE HYDROCHLORIDE
  22. PROVIGIL [Concomitant]
     Active Substance: MODAFINIL
  23. ALDACTONE [Concomitant]
     Active Substance: SPIRONOLACTONE
  24. LOVASTATIN. [Concomitant]
     Active Substance: LOVASTATIN
  25. SONATA [Concomitant]
     Active Substance: ZALEPLON
  26. METHOCARBAMOL. [Concomitant]
     Active Substance: METHOCARBAMOL
  27. FLUOROMETHOLONE. [Concomitant]
     Active Substance: FLUOROMETHOLONE
  28. ATENOLOL/HCTZ [Concomitant]
     Active Substance: ATENOLOL

REACTIONS (5)
  - Back pain [Not Recovered/Not Resolved]
  - Rheumatoid arthritis [Not Recovered/Not Resolved]
  - Eye inflammation [Not Recovered/Not Resolved]
  - Spinal disorder [Not Recovered/Not Resolved]
  - Pre-existing condition improved [Unknown]
